FAERS Safety Report 5125197-X (Version None)
Quarter: 2006Q4

REPORT INFORMATION
  Report Type: 
  Country: None (occurrence: None)
  Receive Date: 20061010
  Receipt Date: 20061010
  Transmission Date: 20070319
  Serious: Yes (Hospitalization)
  Sender: FDA-Public Use
  Company Number: None

PATIENT
  Age: 74 Year
  Sex: Male

DRUGS (10)
  1. NPH INSULIN [Suspect]
     Indication: DIABETES MELLITUS INSULIN-DEPENDENT
     Dosage: 34 UNITS AM / 14 UNITS PM
     Dates: start: 19960301
  2. GABAPENTIN [Concomitant]
  3. SENOKOT [Concomitant]
  4. METOPROLOL TARTRATE [Concomitant]
  5. PAROXETINE HCL [Concomitant]
  6. FOSINOPRIL SODIUM [Concomitant]
  7. TERAZOSIN HCL [Concomitant]
  8. NIFEDIPINE [Concomitant]
  9. INDAPAMIDE [Concomitant]
  10. METOCLOPRAMIDE [Concomitant]

REACTIONS (2)
  - HYPOGLYCAEMIA [None]
  - SYNCOPE [None]
